FAERS Safety Report 17050956 (Version 2)
Quarter: 2019Q4

REPORT INFORMATION
  Report Type: Spontaneous
  Country: US (occurrence: US)
  Receive Date: 20191120
  Receipt Date: 20191125
  Transmission Date: 20200122
  Serious: Yes (Life-Threatening, Hospitalization, Other)
  Sender: FDA-Public Use
  Company Number: US-ADVANZ PHARMA-201911001737

PATIENT

DRUGS (6)
  1. CLONIDINE. [Suspect]
     Active Substance: CLONIDINE
     Indication: AUTISM SPECTRUM DISORDER
     Dosage: 0.4 MG FOUR 0.1-MG TABLETS
  2. SUCCINYLCHOLINE [Concomitant]
     Active Substance: SUCCINYLCHOLINE
     Indication: BRADYCARDIA
  3. CLONIDINE. [Suspect]
     Active Substance: CLONIDINE
     Indication: ATTENTION DEFICIT/HYPERACTIVITY DISORDER
  4. SUCCINYLCHOLINE [Concomitant]
     Active Substance: SUCCINYLCHOLINE
     Indication: PARALYSIS
  5. PROPOFOL. [Concomitant]
     Active Substance: PROPOFOL
     Indication: SEDATION
     Dosage: 10 MG/KG/MIN
  6. ROCURONIUM [Concomitant]
     Active Substance: ROCURONIUM BROMIDE
     Indication: PARALYSIS
     Dosage: 0.1 MG/KG (1.8 MG)

REACTIONS (4)
  - Overdose [Recovered/Resolved]
  - Mental status changes [Recovered/Resolved]
  - Obstructive airways disorder [Recovered/Resolved]
  - Sinus bradycardia [Recovered/Resolved]
